FAERS Safety Report 13781387 (Version 1)
Quarter: 2017Q3

REPORT INFORMATION
  Report Type: Spontaneous
  Country: US (occurrence: US)
  Receive Date: 20170724
  Receipt Date: 20170724
  Transmission Date: 20171127
  Serious: No
  Sender: FDA-Public Use
  Company Number: US-BAYER-2017-139511

PATIENT
  Age: 82 Year
  Sex: Male
  Weight: 64 kg

DRUGS (3)
  1. LISINOPRIL. [Concomitant]
     Active Substance: LISINOPRIL
  2. MIRALAX [Suspect]
     Active Substance: POLYETHYLENE GLYCOL 3350
     Indication: CONSTIPATION
     Dosage: UNK
     Route: 048
     Dates: end: 20170719
  3. MIRALAX [Suspect]
     Active Substance: POLYETHYLENE GLYCOL 3350
     Indication: COLONOSCOPY

REACTIONS (5)
  - Product use in unapproved indication [Unknown]
  - Drug prescribing error [Unknown]
  - Off label use [Unknown]
  - Wrong technique in product usage process [Unknown]
  - Incorrect dosage administered [Unknown]

NARRATIVE: CASE EVENT DATE: 20170718
